FAERS Safety Report 8255477-0 (Version None)
Quarter: 2012Q1

REPORT INFORMATION
  Report Type: 
  Country: None (occurrence: None)
  Receive Date: 20120329
  Receipt Date: 20120319
  Transmission Date: 20120608
  Serious: Yes (Disabling)
  Sender: FDA-Public Use
  Company Number: 1231908

PATIENT
  Age: 76 Year
  Sex: Female
  Weight: 49 kg

DRUGS (10)
  1. CEFTRIAXONE SODIUM [Suspect]
     Indication: PRODUCT USED FOR UNKNOWN INDICATION
     Dosage: 1.0 GRAM, 1 EVERY DAY(S), INTRAVENOUS
     Route: 042
  2. (HYPROMELLOSE) [Concomitant]
  3. CALCIUM CARBONATE [Concomitant]
  4. (CHOLECALCIFEROL) [Concomitant]
  5. METRONIDAZOLE [Suspect]
     Indication: PRODUCT USED FOR UNKNOWN INDICATION
     Dosage: 500.0MG, 3 EVERY 1 DAY(S), INTRAVENOUS
     Route: 042
  6. (BISCODYL) [Concomitant]
  7. (ENTERIC ASPIRIN) [Concomitant]
  8. SENOKOT [Concomitant]
  9. SINEMET [Concomitant]
  10. ATROPINE [Concomitant]

REACTIONS (1)
  - PETECHIAE [None]
